FAERS Safety Report 4391138-6 (Version None)
Quarter: 2004Q2

REPORT INFORMATION
  Report Type: 
  Country: None (occurrence: None)
  Receive Date: 20040621
  Receipt Date: 20031201
  Transmission Date: 20050107
  Serious: Yes (Death)
  Sender: FDA-Public Use
  Company Number: USA-2003-0011596

PATIENT
  Age: 39 Year
  Sex: Female
  Weight: 92.1 kg

DRUGS (4)
  1. OXYCONTIN [Suspect]
     Dosage: UNK MG
  2. SOMA [Suspect]
  3. MEPROBAMATE [Suspect]
  4. ACETAMINOPHEN [Suspect]

REACTIONS (1)
  - ACCIDENTAL OVERDOSE [None]
